FAERS Safety Report 4621316-X (Version None)
Quarter: 2005Q1

REPORT INFORMATION
  Report Type: 
  Country: None (occurrence: None)
  Receive Date: 20050322
  Receipt Date: 20050322
  Transmission Date: 20050727
  Serious: Yes (Other)
  Sender: FDA-Public Use
  Company Number: None

PATIENT
  Sex: Female
  Weight: 92.5338 kg

DRUGS (7)
  1. TOPAMAX [Suspect]
     Indication: MIGRAINE PROPHYLAXIS
     Dosage: 125MG PO QHS
     Route: 048
     Dates: start: 20040401, end: 20041201
  2. PAXIL [Concomitant]
  3. ATENOLOL [Concomitant]
  4. TRAZODONE HCL [Concomitant]
  5. MENEST [Concomitant]
  6. GEMFIBROZIL [Concomitant]
  7. ACIPHEX [Concomitant]

REACTIONS (6)
  - ALOPECIA [None]
  - AMNESIA [None]
  - CONFUSIONAL STATE [None]
  - GINGIVAL BLEEDING [None]
  - HYPOAESTHESIA [None]
  - NAIL DISORDER [None]
